FAERS Safety Report 9033426 (Version 1)
Quarter: 2013Q1

REPORT INFORMATION
  Report Type: Spontaneous
  Country: CA (occurrence: CA)
  Receive Date: 20130128
  Receipt Date: 20130128
  Transmission Date: 20140127
  Serious: Yes (Hospitalization)
  Sender: FDA-Public Use
  Company Number: CA-AMGEN-CANSP2012061397

PATIENT
  Age: 61 Year
  Sex: Female

DRUGS (4)
  1. ARANESP [Suspect]
     Indication: RENAL FAILURE CHRONIC
     Dosage: 10 MUG, QWK
     Dates: start: 20120829
  2. ANTIHYPERTENSIVES [Concomitant]
  3. VITAMINS [Concomitant]
  4. DIURETICS [Concomitant]

REACTIONS (2)
  - Cardiac disorder [Unknown]
  - Abdominal pain upper [Unknown]
